FAERS Safety Report 20417706 (Version 16)
Quarter: 2023Q4

REPORT INFORMATION
  Report Type: Report from Study
  Country: CN (occurrence: CN)
  Receive Date: 20220202
  Receipt Date: 20231030
  Transmission Date: 20240110
  Serious: Yes (Hospitalization)
  Sender: FDA-Public Use
  Company Number: CN-PFIZER INC-202200168080

PATIENT
  Age: 40 Year
  Sex: Female
  Weight: 62 kg

DRUGS (18)
  1. PALBOCICLIB [Suspect]
     Active Substance: PALBOCICLIB
     Indication: Breast cancer metastatic
     Dosage: 125 MG, 1X/DAY
     Route: 048
     Dates: start: 20211105
  2. INAVOLISIB [Suspect]
     Active Substance: INAVOLISIB
     Indication: Breast cancer metastatic
     Dosage: 9 MG, 1X/DAY
     Route: 048
     Dates: start: 20211105
  3. FULVESTRANT [Suspect]
     Active Substance: FULVESTRANT
     Indication: Breast cancer metastatic
     Dosage: 500 MG, CYCLIC
     Route: 030
     Dates: start: 20211105
  4. ZOLEDRONIC ACID [Concomitant]
     Active Substance: ZOLEDRONIC ACID
     Indication: Prophylaxis
     Dosage: 4 MG, 1 IN 1 D (FORMULATION: LIQUID)
     Route: 042
     Dates: start: 20211231, end: 20211231
  5. ZOLEDRONIC ACID [Concomitant]
     Active Substance: ZOLEDRONIC ACID
     Indication: Resorption bone increased
  6. GOSERELIN ACETATE [Concomitant]
     Active Substance: GOSERELIN ACETATE
     Dosage: 3.6 MG,1 IN 1 M
     Route: 058
     Dates: start: 20211213, end: 20211213
  7. GOSERELIN ACETATE [Concomitant]
     Active Substance: GOSERELIN ACETATE
     Dosage: 3.6 MG,1 IN 1 M
     Route: 058
     Dates: start: 20220114, end: 20220114
  8. POTASSIUM CHLORIDE [Concomitant]
     Active Substance: POTASSIUM CHLORIDE
     Indication: Nutritional supplementation
     Dosage: 8 G,1 IN 1 D (FORMULATION: LIQUID)
     Route: 048
     Dates: start: 20220121, end: 20220121
  9. POTASSIUM CHLORIDE [Concomitant]
     Active Substance: POTASSIUM CHLORIDE
     Indication: Electrolyte imbalance
  10. POTASSIUM CHLORIDE [Concomitant]
     Active Substance: POTASSIUM CHLORIDE
     Indication: Nutritional supplementation
     Dosage: 3 G,1 IN 1 D (FORMULATION: LIQUID)
     Route: 042
     Dates: start: 20220121, end: 20220121
  11. POTASSIUM CHLORIDE [Concomitant]
     Active Substance: POTASSIUM CHLORIDE
     Indication: Electrolyte imbalance
  12. METFORMIN [Concomitant]
     Active Substance: METFORMIN HYDROCHLORIDE
     Indication: Blood glucose decreased
     Dosage: 0.5 G,1 IN 1 D
     Route: 048
     Dates: start: 20220104, end: 20220116
  13. METFORMIN [Concomitant]
     Active Substance: METFORMIN HYDROCHLORIDE
     Dosage: 0.25 G,1 IN 1 D
     Route: 048
     Dates: start: 20220123, end: 20220203
  14. ESOMEPRAZOLE SODIUM [Concomitant]
     Active Substance: ESOMEPRAZOLE SODIUM
     Dosage: 40 MG,1 IN 1 D (FORMULATION: LIQUID)
     Route: 042
     Dates: start: 20220121, end: 20220121
  15. ESOMEPRAZOLE SODIUM [Concomitant]
     Active Substance: ESOMEPRAZOLE SODIUM
     Dosage: 40 MG,1 IN 1 D (FORMULATION: LIQUID)
     Route: 042
     Dates: start: 20220122, end: 20220122
  16. DEXTROSE\SODIUM CHLORIDE [Concomitant]
     Active Substance: DEXTROSE\SODIUM CHLORIDE
     Indication: Electrolyte imbalance
     Dosage: 500 ML,1 IN 1 D
     Route: 042
     Dates: start: 20220121, end: 20220121
  17. SODIUM CHLORIDE [Concomitant]
     Active Substance: SODIUM CHLORIDE
     Dosage: 3 G,1 IN 1 D
     Route: 042
     Dates: start: 20220121, end: 20220121
  18. DEXTROSE [Concomitant]
     Active Substance: DEXTROSE\DEXTROSE MONOHYDRATE
     Dosage: 500 ML,2 IN 1 D
     Route: 042
     Dates: start: 20220121, end: 20220121

REACTIONS (1)
  - Malaise [Recovered/Resolved]

NARRATIVE: CASE EVENT DATE: 20220111
